FAERS Safety Report 4384933-0 (Version None)
Quarter: 2004Q2

REPORT INFORMATION
  Report Type: 
  Country: None (occurrence: None)
  Receive Date: 20040623
  Receipt Date: 20040611
  Transmission Date: 20050107
  Serious: No
  Sender: FDA-Public Use
  Company Number: 2004UW09261

PATIENT
  Age: 66 Year
  Sex: Male

DRUGS (3)
  1. CRESTOR [Suspect]
     Indication: BLOOD CHOLESTEROL INCREASED
     Dosage: 20 MG QD PO
     Route: 048
     Dates: start: 20030829
  2. ACTOS [Suspect]
  3. ZESTORETIC [Concomitant]

REACTIONS (4)
  - LYMPHOMA [None]
  - MUSCLE SPASMS [None]
  - NECROSIS [None]
  - PAIN [None]
